FAERS Safety Report 8604295-X (Version None)
Quarter: 2012Q3

REPORT INFORMATION
  Report Type: 
  Country: None (occurrence: None)
  Receive Date: 20120820
  Receipt Date: 20120809
  Transmission Date: 20120928
  Serious: Yes (Other)
  Sender: FDA-Public Use
  Company Number: US-JNJFOC-20120807236

PATIENT
  Age: 42 Year
  Sex: Female
  Weight: 90.7 kg

DRUGS (1)
  1. IBUPROFEN [Suspect]
     Indication: HEADACHE
     Route: 065
     Dates: start: 19980101

REACTIONS (3)
  - BLOOD ALDOSTERONE ABNORMAL [None]
  - TORTICOLLIS [None]
  - FIBROMYALGIA [None]
